FAERS Safety Report 10915139 (Version 2)
Quarter: 2015Q2

REPORT INFORMATION
  Report Type: Spontaneous
  Country: DE (occurrence: DE)
  Receive Date: 20150316
  Receipt Date: 20150514
  Transmission Date: 20150821
  Serious: Yes (Disabling, Other)
  Sender: FDA-Public Use
  Company Number: DE-ROCHE-1551547

PATIENT
  Age: 74 Year
  Sex: Male
  Weight: 54 kg

DRUGS (25)
  1. HYLO-COMOD [Concomitant]
     Route: 065
  2. FOLSAN [Concomitant]
     Active Substance: FOLIC ACID
     Route: 065
  3. VOLTAREN [Concomitant]
     Active Substance: DICLOFENAC SODIUM
     Route: 065
  4. IDEOS [Concomitant]
     Active Substance: CALCIUM CARBONATE\CHOLECALCIFEROL
     Route: 065
  5. PANTOZOL [Concomitant]
     Active Substance: PANTOPRAZOLE SODIUM
     Dosage: HALF DOSE DAILY
     Route: 065
  6. XALATAN [Concomitant]
     Active Substance: LATANOPROST
     Route: 065
  7. XARELTO [Concomitant]
     Active Substance: RIVAROXABAN
     Route: 065
  8. ATORVASTATIN [Concomitant]
     Active Substance: ATORVASTATIN
     Route: 065
  9. AMOXICILLIN. [Concomitant]
     Active Substance: AMOXICILLIN
     Dosage: 875/125
     Route: 065
  10. JANUMET [Concomitant]
     Active Substance: METFORMIN HYDROCHLORIDE\SITAGLIPTIN PHOSPHATE
     Dosage: 50/850 MG
     Route: 065
  11. NEUREXAN [Concomitant]
     Active Substance: HOMEOPATHICS
     Route: 065
  12. HEPAR SL [Concomitant]
     Route: 065
  13. DECORTIN [Concomitant]
     Active Substance: PREDNISONE
     Route: 065
  14. CARMEN (GERMANY) [Concomitant]
     Active Substance: LERCANIDIPINE HYDROCHLORIDE
     Route: 065
  15. PLAVIX [Concomitant]
     Active Substance: CLOPIDOGREL BISULFATE
     Route: 065
  16. TILIDIN COMP [Concomitant]
     Active Substance: NALOXONE HYDROCHLORIDE\TILIDINE HYDROCHLORIDE
     Dosage: 50 MG/4 MG, 1-2 DOSES DAILY
     Route: 065
  17. NEBILET [Concomitant]
     Active Substance: NEBIVOLOL
     Route: 065
  18. ENZYM-LEFAX [Concomitant]
     Route: 065
  19. PARACETAMOL [Concomitant]
     Active Substance: ACETAMINOPHEN
     Route: 065
  20. MABTHERA [Suspect]
     Active Substance: RITUXIMAB
     Indication: RHEUMATOID ARTHRITIS
     Route: 042
     Dates: start: 20120328
  21. METHOTREXATE [Concomitant]
     Active Substance: METHOTREXATE
     Indication: RHEUMATOID ARTHRITIS
     Route: 058
     Dates: start: 2010
  22. CIBACEN [Concomitant]
     Active Substance: BENAZEPRIL HYDROCHLORIDE
     Route: 065
  23. METEX (GERMANY) [Concomitant]
     Active Substance: METFORMIN HYDROCHLORIDE
     Route: 058
  24. PROSTAGUTT FORTE [Concomitant]
     Dosage: 80/60 MG
     Route: 065
  25. MCP AL [Concomitant]
     Route: 065

REACTIONS (3)
  - Coronary artery disease [Not Recovered/Not Resolved]
  - Arterial occlusive disease [Not Recovered/Not Resolved]
  - Peripheral arterial occlusive disease [Recovered/Resolved with Sequelae]
